FAERS Safety Report 8422846-5 (Version None)
Quarter: 2012Q2

REPORT INFORMATION
  Report Type: 
  Country: None (occurrence: None)
  Receive Date: 20120608
  Receipt Date: 20120531
  Transmission Date: 20120825
  Serious: Yes (Hospitalization)
  Sender: FDA-Public Use
  Company Number: US-GLAXOSMITHKLINE-A0725139A

PATIENT
  Age: 80 Year
  Sex: Male
  Weight: 113.6 kg

DRUGS (4)
  1. AVANDIA [Suspect]
     Indication: TYPE 2 DIABETES MELLITUS
     Dosage: 4MG PER DAY
     Route: 048
     Dates: start: 20000512, end: 20070627
  2. LANTUS [Concomitant]
     Dates: start: 20000101
  3. AMARYL [Concomitant]
     Dates: start: 20010901, end: 20031013
  4. GLUCOPHAGE [Concomitant]
     Dates: start: 20000212, end: 20010206

REACTIONS (5)
  - CARDIAC FAILURE CONGESTIVE [None]
  - MYOCARDIAL INFARCTION [None]
  - CORONARY ARTERY DISEASE [None]
  - ARRHYTHMIA [None]
  - HEART INJURY [None]
